FAERS Safety Report 8818724 (Version 1)
Quarter: 2012Q4

REPORT INFORMATION
  Report Type: 
  Country: US (occurrence: US)
  Receive Date: 20121001
  Receipt Date: 20121001
  Transmission Date: 20130627
  Serious: Yes (Other)
  Sender: FDA-Public Use
  Company Number: US-ROCHE-1129801

PATIENT
  Sex: Female

DRUGS (7)
  1. HERCEPTIN [Suspect]
     Indication: BREAST CANCER
     Route: 065
  2. TAXOL [Concomitant]
  3. DARVOCET [Concomitant]
  4. ATIVAN [Concomitant]
     Route: 065
  5. TYLENOL [Concomitant]
  6. TAMOXIFEN [Concomitant]
     Route: 065
  7. ARIMIDEX [Concomitant]
     Route: 065

REACTIONS (9)
  - Dyspnoea exertional [Unknown]
  - Neoplasm [Unknown]
  - Cough [Unknown]
  - Fatigue [Unknown]
  - Insomnia [Unknown]
  - Decreased appetite [Unknown]
  - Malaise [Unknown]
  - Asthenia [Unknown]
  - Back pain [Unknown]
